FAERS Safety Report 24056850 (Version 2)
Quarter: 2024Q3

REPORT INFORMATION
  Report Type: Spontaneous
  Country: ES (occurrence: ES)
  Receive Date: 20240706
  Receipt Date: 20240710
  Transmission Date: 20241017
  Serious: Yes (Hospitalization)
  Sender: ROCHE
  Company Number: None

PATIENT
  Age: 78 Year
  Sex: Male

DRUGS (1)
  1. XOLAIR [Suspect]
     Active Substance: OMALIZUMAB
     Indication: Asthma
     Dosage: 150 MG, Q4W, (1 VIAL + 1 AMPOULE OF SOLVENT)
     Route: 065
     Dates: start: 20240411

REACTIONS (1)
  - Status epilepticus [Unknown]

NARRATIVE: CASE EVENT DATE: 20240502
